FAERS Safety Report 9653341 (Version 1)
Quarter: 2013Q4

REPORT INFORMATION
  Report Type: Report from Study
  Country: US (occurrence: US)
  Receive Date: 20131029
  Receipt Date: 20131029
  Transmission Date: 20140711
  Serious: Yes (Hospitalization, Other)
  Sender: FDA-Public Use
  Company Number: US-ABBVIE-13P-163-1159827-00

PATIENT
  Age: 25 Year
  Sex: Female

DRUGS (5)
  1. HUMIRA [Suspect]
     Indication: CROHN^S DISEASE
     Dates: start: 201304
  2. HUMIRA [Suspect]
  3. NORCO [Concomitant]
     Indication: ABDOMINAL PAIN
     Dosage: 7.5/325 EVERY 6 HOURS, AS NEEDED
  4. XANAX [Concomitant]
     Indication: ANXIETY
     Dosage: EVERY 8 HOURS, AS NEEDED
  5. PROBIOTICS [Concomitant]
     Indication: SUPPLEMENTATION THERAPY
     Dosage: DAILY

REACTIONS (4)
  - Hyperhidrosis [Recovering/Resolving]
  - Syncope [Recovering/Resolving]
  - Abdominal pain [Recovering/Resolving]
  - Abdominal pain [Recovered/Resolved]
